FAERS Safety Report 21993885 (Version 1)
Quarter: 2023Q1

REPORT INFORMATION
  Report Type: Spontaneous
  Country: US (occurrence: US)
  Receive Date: 20230215
  Receipt Date: 20230215
  Transmission Date: 20230417
  Serious: Yes (Hospitalization, Other)
  Sender: FDA-Public Use
  Company Number: US-drreddys-LIT/USA/23/0160958

PATIENT
  Age: 43 Year
  Sex: Male

DRUGS (1)
  1. FENTANYL CITRATE [Suspect]
     Active Substance: FENTANYL CITRATE
     Indication: Product used for unknown indication

REACTIONS (4)
  - Exposure to extreme temperature [Unknown]
  - Renal impairment [Unknown]
  - Toxicity to various agents [Unknown]
  - Overdose [Unknown]
